FAERS Safety Report 20664720 (Version 2)
Quarter: 2022Q2

REPORT INFORMATION
  Report Type: Report from Study
  Country: US (occurrence: US)
  Receive Date: 20220401
  Receipt Date: 20220413
  Transmission Date: 20220720
  Serious: Yes (Other)
  Sender: FDA-Public Use
  Company Number: US-JAZZ-2022-US-005217

PATIENT
  Sex: Female

DRUGS (6)
  1. SUNOSI [Suspect]
     Active Substance: SOLRIAMFETOL
     Indication: Product used for unknown indication
     Route: 048
  2. XYWAV [Suspect]
     Active Substance: CALCIUM OXYBATE\MAGNESIUM OXYBATE\POTASSIUM OXYBATE\SODIUM OXYBATE
     Indication: Narcolepsy
     Dosage: DRUG NOT ADMINISTERED
  3. XYWAV [Suspect]
     Active Substance: CALCIUM OXYBATE\MAGNESIUM OXYBATE\POTASSIUM OXYBATE\SODIUM OXYBATE
     Indication: Cataplexy
  4. XYWAV [Suspect]
     Active Substance: CALCIUM OXYBATE\MAGNESIUM OXYBATE\POTASSIUM OXYBATE\SODIUM OXYBATE
     Indication: Somnolence
  5. IBUPROFEN IB [Concomitant]
     Active Substance: IBUPROFEN
     Dosage: 0000
     Dates: start: 20150909
  6. ADDERALL [Concomitant]
     Active Substance: AMPHETAMINE ASPARTATE\AMPHETAMINE SULFATE\DEXTROAMPHETAMINE SACCHARATE\DEXTROAMPHETAMINE SULFATE
     Dosage: UNK

REACTIONS (10)
  - Cataplexy [Unknown]
  - Limb operation [Unknown]
  - Cubital tunnel syndrome [Unknown]
  - Somnolence [Unknown]
  - Surgery [Unknown]
  - Fatigue [Unknown]
  - Muscle spasms [Unknown]
  - Therapeutic response shortened [Unknown]
  - Pain [Unknown]
  - Headache [Unknown]
